FAERS Safety Report 23694838 (Version 2)
Quarter: 2024Q2

REPORT INFORMATION
  Report Type: Report from Study
  Country: US (occurrence: US)
  Receive Date: 20240402
  Receipt Date: 20240502
  Transmission Date: 20240716
  Serious: Yes (Disabling, Other)
  Sender: FDA-Public Use
  Company Number: US-HORIZON THERAPEUTICS-HZN-2022-009777

PATIENT

DRUGS (12)
  1. TEPEZZA [Suspect]
     Active Substance: TEPROTUMUMAB-TRBW
     Indication: Endocrine ophthalmopathy
     Dosage: 770 MG, SINGLE (FIRST INFUSION)
     Route: 042
     Dates: start: 20220520
  2. TEPEZZA [Suspect]
     Active Substance: TEPROTUMUMAB-TRBW
     Indication: Graves^ disease
     Dosage: 1445 MG, EVERY 3 WEEKS (UNKNOWN INFUSION)
     Route: 042
     Dates: start: 20220701
  3. TEPEZZA [Suspect]
     Active Substance: TEPROTUMUMAB-TRBW
     Dosage: 1420 MG, EVERY 3 WEEKS (UNKNOWN INFUSION)
     Route: 042
     Dates: start: 20220722
  4. TEPEZZA [Suspect]
     Active Substance: TEPROTUMUMAB-TRBW
     Dosage: 1398 MG, EVERY 3 WEEKS (UNKNOWN INFUSION)
     Route: 042
     Dates: start: 20220812
  5. TEPEZZA [Suspect]
     Active Substance: TEPROTUMUMAB-TRBW
     Dosage: 1364 MG, EVERY 3 WEEKS (UNKNOWN INFUSION)
     Route: 042
     Dates: start: 20220902
  6. TEPEZZA [Suspect]
     Active Substance: TEPROTUMUMAB-TRBW
     Dosage: 1354 MG, EVERY 3 WEEKS (UNKNOWN INFUSION)
     Route: 042
     Dates: start: 20220923
  7. TEPEZZA [Suspect]
     Active Substance: TEPROTUMUMAB-TRBW
     Dosage: 1348 MG, EVERY 3 WEEKS (EIGHTH INFUSION)
     Route: 042
     Dates: start: 20221014
  8. SYNTHROID [Concomitant]
     Active Substance: LEVOTHYROXINE SODIUM
     Dosage: 112 MG, QD
  9. ATIVAN [Concomitant]
     Active Substance: LORAZEPAM
     Dosage: 1 MG, PRN
  10. DEXILANT [Concomitant]
     Active Substance: DEXLANSOPRAZOLE
     Dosage: 60 MG, PRN
  11. BENADRYL [Concomitant]
     Active Substance: DIPHENHYDRAMINE HYDROCHLORIDE
  12. PEPCID [Concomitant]
     Active Substance: FAMOTIDINE

REACTIONS (29)
  - Disability [Not Recovered/Not Resolved]
  - Deafness permanent [Not Recovered/Not Resolved]
  - Physical disability [Not Recovered/Not Resolved]
  - Blindness [Unknown]
  - Injury [Not Recovered/Not Resolved]
  - Pain [Not Recovered/Not Resolved]
  - Deformity [Not Recovered/Not Resolved]
  - Emotional distress [Not Recovered/Not Resolved]
  - Impaired quality of life [Not Recovered/Not Resolved]
  - Economic problem [Not Recovered/Not Resolved]
  - Discomfort [Unknown]
  - Concomitant disease aggravated [Not Recovered/Not Resolved]
  - Anxiety [Not Recovered/Not Resolved]
  - Tinnitus [Not Recovered/Not Resolved]
  - Palpitations [Unknown]
  - Gastrooesophageal reflux disease [Unknown]
  - COVID-19 [Unknown]
  - Productive cough [Unknown]
  - Head discomfort [Unknown]
  - Sinus disorder [Unknown]
  - Ear infection [Unknown]
  - Upper-airway cough syndrome [Unknown]
  - Eye pain [Unknown]
  - Ear discomfort [Unknown]
  - Nasal congestion [Unknown]
  - Eustachian tube patulous [Unknown]
  - Eustachian tube dysfunction [Unknown]
  - Autophony [Not Recovered/Not Resolved]
  - Product quality issue [Unknown]

NARRATIVE: CASE EVENT DATE: 20220101
